FAERS Safety Report 21825422 (Version 1)
Quarter: 2023Q1

REPORT INFORMATION
  Report Type: Report from Study
  Country: US (occurrence: US)
  Receive Date: 20230105
  Receipt Date: 20230105
  Transmission Date: 20230417
  Serious: No
  Sender: FDA-Public Use
  Company Number: US-Ipsen Biopharmaceuticals, Inc.-2023-00269

PATIENT
  Age: 47 Year
  Sex: Female

DRUGS (1)
  1. SOMATULINE DEPOT [Suspect]
     Active Substance: LANREOTIDE ACETATE
     Indication: Acromegaly
     Dosage: 60MG/0.2ML
     Dates: start: 20220217

REACTIONS (3)
  - Drug hypersensitivity [Recovering/Resolving]
  - Chemotherapy [Recovering/Resolving]
  - Vitamin D decreased [Recovering/Resolving]
